FAERS Safety Report 6275990-5 (Version None)
Quarter: 2009Q3

REPORT INFORMATION
  Report Type: 
  Country: None (occurrence: None)
  Receive Date: 20090720
  Receipt Date: 20090710
  Transmission Date: 20100115
  Serious: Yes (Hospitalization)
  Sender: FDA-Public Use
  Company Number: 09US002504

PATIENT
  Sex: Female

DRUGS (5)
  1. SIMVASTATIN [Suspect]
     Indication: DRUG USE FOR UNKNOWN INDICATION
     Dosage: 80 MG, QD, ORAL
     Route: 048
  2. DAPTOMYCIN (DAPTOMYCIN) [Suspect]
     Indication: SKIN INFECTION
     Dosage: 7.2 MG/KG, DAILY, INTRAVENOUS, 7.2 MG/KG, EVERY 48 HOURS, INTRAVENOUS
     Route: 042
  3. DAPTOMYCIN (DAPTOMYCIN) [Suspect]
     Indication: SKIN INFECTION
     Dosage: 7.2 MG/KG, DAILY, INTRAVENOUS, 7.2 MG/KG, EVERY 48 HOURS, INTRAVENOUS
     Route: 042
  4. NIACIN [Suspect]
     Indication: DRUG USE FOR UNKNOWN INDICATION
     Dosage: 500 MG, QD, ORAL
     Route: 048
  5. ESOMEPRAZOLE MAGNESIUM [Concomitant]

REACTIONS (3)
  - POTENTIATING DRUG INTERACTION [None]
  - RENAL FAILURE ACUTE [None]
  - RHABDOMYOLYSIS [None]
